FAERS Safety Report 20419242 (Version 1)
Quarter: 2022Q1

REPORT INFORMATION
  Report Type: Spontaneous
  Country: US (occurrence: US)
  Receive Date: 20220203
  Receipt Date: 20220203
  Transmission Date: 20220423
  Serious: No
  Sender: FDA-Public Use
  Company Number: US-TEVA-2022-US-1998764

PATIENT
  Age: 77 Year
  Sex: Male
  Weight: 104.33 kg

DRUGS (2)
  1. CINQAIR [Suspect]
     Active Substance: RESLIZUMAB
     Indication: Asthma
     Dosage: RECOMMENDED DRIP RATE IS 20 - 50 MINUTES
     Route: 040
  2. CINQAIR [Suspect]
     Active Substance: RESLIZUMAB
     Dosage: RECOMMENDED DRIP RATE IS 20 - 50 MINUTES,SOMETIMES HE GETS HIS INFUSION OVER 15 MINUTES/MOST RECENT
     Route: 040
     Dates: start: 2016

REACTIONS (4)
  - Incorrect drug administration rate [Unknown]
  - Weight decreased [Unknown]
  - Spinal disorder [Unknown]
  - Body height decreased [Unknown]
